FAERS Safety Report 9085225 (Version 1)
Quarter: 2013Q1

REPORT INFORMATION
  Report Type: Report from Study
  Country: US (occurrence: US)
  Receive Date: 20130130
  Receipt Date: 20130130
  Transmission Date: 20140127
  Serious: No
  Sender: FDA-Public Use
  Company Number: US-ABBOTT-12P-163-0953958-00

PATIENT
  Age: 14 Year
  Sex: Male

DRUGS (3)
  1. HUMIRA 40 MG/0.8 ML PEN [Suspect]
     Indication: CROHN^S DISEASE
     Dates: start: 20120627, end: 20120627
  2. HUMIRA 40 MG/0.8 ML PEN [Suspect]
     Dates: start: 20120704, end: 20120704
  3. HUMIRA 40 MG/0.8 ML PEN [Suspect]

REACTIONS (1)
  - Injection site pain [Recovered/Resolved]
